FAERS Safety Report 8601877 (Version 2)
Quarter: 2013Q2

REPORT INFORMATION
  Report Type: Spontaneous
  Country: FR (occurrence: FR)
  Receive Date: 20120606
  Receipt Date: 20130415
  Transmission Date: 20140414
  Serious: Yes (Hospitalization)
  Sender: FDA-Public Use
  Company Number: PHHY2012FR046640

PATIENT
  Age: 70 Year
  Sex: Female

DRUGS (6)
  1. AMOXICILLIN-CLAVULANIC ACID [Suspect]
     Indication: RESPIRATORY TRACT INFECTION
  2. WARFARIN [Suspect]
     Dosage: 4 MG, PER DAY
  3. FLUINDIONE [Suspect]
  4. BISOPROLOL [Concomitant]
  5. LISINOPRIL [Concomitant]
  6. ASPIRIN [Concomitant]

REACTIONS (8)
  - Skin necrosis [Recovered/Resolved]
  - Skin lesion [Recovered/Resolved]
  - Purpura [Recovered/Resolved]
  - Pyrexia [Recovered/Resolved]
  - Blister [Recovered/Resolved]
  - Systemic inflammatory response syndrome [Recovered/Resolved]
  - Thrombosis [Recovered/Resolved]
  - Haemorrhage [Recovered/Resolved]
